FAERS Safety Report 21902788 (Version 3)
Quarter: 2023Q1

REPORT INFORMATION
  Report Type: Spontaneous
  Country: BE (occurrence: BE)
  Receive Date: 20230124
  Receipt Date: 20230227
  Transmission Date: 20230417
  Serious: Yes (Other)
  Sender: FDA-Public Use
  Company Number: BE-ASTELLAS-2023US002432

PATIENT
  Sex: Male

DRUGS (8)
  1. ENFORTUMAB VEDOTIN [Suspect]
     Active Substance: ENFORTUMAB VEDOTIN
     Indication: Transitional cell carcinoma
     Dosage: UNK, UNKNOWN FREQ.
     Route: 065
     Dates: start: 20221031
  2. BILASTINE [Concomitant]
     Active Substance: BILASTINE
     Indication: Pruritus
     Dosage: 20 MG, UNKNOWN FREQ. (MAX 2)
     Route: 065
  3. IMODIUM [Concomitant]
     Active Substance: LOPERAMIDE HYDROCHLORIDE
     Indication: Diarrhoea
     Dosage: 2 MG, UNKNOWN FREQ. (MAX 4)
     Route: 065
  4. MOTILIUM [Concomitant]
     Active Substance: DOMPERIDONE
     Indication: Nausea
     Dosage: 10 MG, UNKNOWN FREQ. (MAX 1)
     Route: 065
  5. OXYCODONE HYDROCHLORIDE [Concomitant]
     Active Substance: OXYCODONE HYDROCHLORIDE
     Indication: Pain
     Dosage: 5 MG, UNKNOWN FREQ. (MAX 3)
     Route: 065
  6. Pantomed [Concomitant]
     Indication: Product used for unknown indication
     Dosage: 40 MG, UNKNOWN FREQ. 1/D, 8U
     Route: 065
  7. ACETAMINOPHEN [Concomitant]
     Active Substance: ACETAMINOPHEN
     Indication: Pain
     Dosage: 1 G, UNKNOWN FREQ. (MAX 4)
     Route: 065
  8. SYSTANE (HYPROMELLOSE 2910 (4000 MPA.S)) [Concomitant]
     Active Substance: HYPROMELLOSE 2910 (4000 MPA.S)
     Indication: Dry eye
     Dosage: 1 DROP, UNKNOWN FREQ. (MAX 2), LOC EYE BILATERAL
     Route: 047

REACTIONS (5)
  - Hepatotoxicity [Recovered/Resolved]
  - Erysipelas [Unknown]
  - Colitis [Unknown]
  - Urinary tract infection [Unknown]
  - Escherichia urinary tract infection [Unknown]

NARRATIVE: CASE EVENT DATE: 20221125
